FAERS Safety Report 10010186 (Version 4)
Quarter: 2014Q2

REPORT INFORMATION
  Report Type: Spontaneous
  Country: FR (occurrence: FR)
  Receive Date: 20140313
  Receipt Date: 20140618
  Transmission Date: 20141212
  Serious: Yes (Other)
  Sender: FDA-Public Use
  Company Number: FR-CELGENEUS-056-21880-14024620

PATIENT
  Age: 49 Year
  Sex: Male
  Weight: 66 kg

DRUGS (15)
  1. REVLIMID [Suspect]
     Indication: PLASMA CELL MYELOMA
     Dosage: 25 MILLIGRAM
     Route: 048
     Dates: start: 20110801, end: 201112
  2. REVLIMID [Suspect]
     Dosage: 10 MILLIGRAM
     Route: 048
     Dates: start: 20131204, end: 20140208
  3. REVLIMID [Suspect]
     Route: 048
     Dates: start: 201404
  4. ALKERAN [Suspect]
     Indication: BONE MARROW TRANSPLANT
     Dosage: 400 MILLIGRAM
     Route: 041
     Dates: start: 20080901, end: 20080903
  5. ALKERAN [Suspect]
     Dosage: 400 MILLIGRAM
     Route: 041
     Dates: start: 20120201, end: 20120203
  6. VELCADE [Suspect]
     Indication: PLASMA CELL MYELOMA
     Route: 058
     Dates: start: 2008, end: 2008
  7. VELCADE [Suspect]
     Route: 058
     Dates: start: 20110801, end: 2011
  8. VELCADE [Suspect]
     Route: 058
     Dates: start: 20130610, end: 20131028
  9. DEXAMETHASONE [Suspect]
     Indication: PLASMA CELL MYELOMA
     Dosage: 80 MILLIGRAM
     Route: 041
     Dates: start: 2008, end: 2008
  10. DEXAMETHASONE [Suspect]
     Route: 065
     Dates: start: 20130610, end: 20131028
  11. DEXAMETHASONE [Suspect]
     Route: 041
     Dates: start: 201305, end: 20131108
  12. DEXAMETHASONE [Suspect]
     Route: 065
     Dates: start: 2011, end: 2011
  13. CYCLOPHOSPHAMIDE [Concomitant]
     Indication: PLASMA CELL MYELOMA RECURRENT
     Route: 041
     Dates: start: 20130610, end: 20131118
  14. SKENAN [Concomitant]
     Indication: BONE PAIN
     Dosage: 30 MILLIGRAM
     Route: 048
  15. OSTEPAM [Concomitant]
     Indication: PLASMA CELL MYELOMA
     Route: 041

REACTIONS (1)
  - Rectal adenocarcinoma [Not Recovered/Not Resolved]
